FAERS Safety Report 4740509-4 (Version None)
Quarter: 2005Q3

REPORT INFORMATION
  Report Type: 
  Country: None (occurrence: None)
  Receive Date: 20050810
  Receipt Date: 20050307
  Transmission Date: 20060218
  Serious: Yes (Other)
  Sender: FDA-Public Use
  Company Number: PHNU2005DE01247

PATIENT
  Age: 70 Year
  Sex: Male

DRUGS (2)
  1. ZOMETA [Suspect]
     Indication: PROSTATE CANCER METASTATIC
  2. LEUPRORELIN [Concomitant]
     Route: 065
     Dates: start: 19891101

REACTIONS (3)
  - ACTINOMYCOSIS [None]
  - ASEPTIC NECROSIS BONE [None]
  - OSTEONECROSIS [None]
